FAERS Safety Report 26066018 (Version 1)
Quarter: 2025Q4

REPORT INFORMATION
  Report Type: Report from Study
  Country: US (occurrence: US)
  Receive Date: 20251119
  Receipt Date: 20251119
  Transmission Date: 20260117
  Serious: Yes (Other)
  Sender: TAKEDA
  Company Number: US-TAKEDA-2021TUS069983

PATIENT
  Age: 61 Year
  Sex: Male

DRUGS (2)
  1. VEDOLIZUMAB [Suspect]
     Active Substance: VEDOLIZUMAB
     Indication: Colitis microscopic
     Dosage: 300 MILLIGRAM
  2. VEDOLIZUMAB [Suspect]
     Active Substance: VEDOLIZUMAB
     Indication: Colitis ulcerative
     Dosage: 300 MILLIGRAM, Q6WEEKS

REACTIONS (27)
  - Thrombocytopenia [Unknown]
  - Arteriosclerosis coronary artery [Unknown]
  - Hepatic fibrosis [Unknown]
  - Gastrointestinal haemorrhage [Unknown]
  - Chronic kidney disease [Unknown]
  - Diverticulitis [Unknown]
  - Cataract [Unknown]
  - Gastric ulcer [Unknown]
  - Abdominal pain upper [Unknown]
  - Diarrhoea [Unknown]
  - Large intestine polyp [Unknown]
  - Foreign body [Unknown]
  - Face oedema [Unknown]
  - Eructation [Unknown]
  - Functional gastrointestinal disorder [Unknown]
  - Iron deficiency anaemia [Unknown]
  - Colon neoplasm [Unknown]
  - Therapeutic reaction time decreased [Unknown]
  - Abdominal pain [Unknown]
  - Vomiting [Unknown]
  - Abdominal distension [Unknown]
  - Flatulence [Unknown]
  - Haemorrhoids [Unknown]
  - Constipation [Unknown]
  - Nausea [Unknown]
  - Product dose omission issue [Unknown]
  - Off label use [Unknown]

NARRATIVE: CASE EVENT DATE: 20250520
